FAERS Safety Report 5061047-8 (Version None)
Quarter: 2006Q3

REPORT INFORMATION
  Report Type: 
  Country: None (occurrence: None)
  Receive Date: 20060725
  Receipt Date: 20060714
  Transmission Date: 20061208
  Serious: Yes (Other)
  Sender: FDA-Public Use
  Company Number: GB-MERCK-0607GBR00076

PATIENT
  Age: 71 Year
  Sex: Male
  Weight: 81 kg

DRUGS (3)
  1. ZETIA [Suspect]
     Indication: HYPERCHOLESTEROLAEMIA
     Route: 048
     Dates: start: 20060106, end: 20060110
  2. ASPIRIN [Concomitant]
     Route: 048
  3. ROSUVASTATIN CALCIUM [Concomitant]
     Route: 048

REACTIONS (2)
  - JOINT STIFFNESS [None]
  - MYALGIA [None]
